FAERS Safety Report 7532753-8 (Version None)
Quarter: 2011Q2

REPORT INFORMATION
  Report Type: 
  Country: None (occurrence: None)
  Receive Date: 20110608
  Receipt Date: 20110524
  Transmission Date: 20111010
  Serious: Yes (Hospitalization, Congenital Anomaly)
  Sender: FDA-Public Use
  Company Number: A0930623A

PATIENT
  Sex: Male
  Weight: 2.9 kg

DRUGS (2)
  1. PRENATAL VITAMINS [Concomitant]
  2. PAXIL [Suspect]
     Dosage: 20MG PER DAY
     Route: 064

REACTIONS (4)
  - BICUSPID AORTIC VALVE [None]
  - COARCTATION OF THE AORTA [None]
  - DRUG EXPOSURE DURING PREGNANCY [None]
  - MITRAL VALVE DISEASE [None]
